FAERS Safety Report 7887870-X (Version None)
Quarter: 2011Q4

REPORT INFORMATION
  Report Type: 
  Country: None (occurrence: None)
  Receive Date: 20111103
  Receipt Date: 20111103
  Transmission Date: 20120403
  Serious: Yes (Disabling, Other)
  Sender: FDA-Public Use
  Company Number: None

PATIENT
  Age: 26 Year
  Sex: Female
  Weight: 52.163 kg

DRUGS (4)
  1. IBPROFEN [Concomitant]
     Route: 048
  2. CIPROFLOXACIN [Suspect]
     Indication: KIDNEY INFECTION
     Dosage: 250MG
     Route: 048
     Dates: start: 20110410, end: 20110411
  3. WELLBUTRIN SR [Concomitant]
     Route: 048
  4. IBUPROFEN (ADVIL) [Concomitant]
     Route: 048

REACTIONS (7)
  - ANXIETY [None]
  - SUICIDAL IDEATION [None]
  - TENDON DISORDER [None]
  - INSOMNIA [None]
  - FEELING ABNORMAL [None]
  - DEPRESSION [None]
  - AKATHISIA [None]
